FAERS Safety Report 9357002 (Version 1)
Quarter: 2013Q2

REPORT INFORMATION
  Report Type: Spontaneous
  Country: GB (occurrence: GB)
  Receive Date: 20130620
  Receipt Date: 20130620
  Transmission Date: 20140414
  Serious: Yes (Other)
  Sender: FDA-Public Use
  Company Number: GB-ROCHE-1237751

PATIENT
  Age: 55 Year
  Sex: Female
  Weight: 88.44 kg

DRUGS (9)
  1. NAPROXEN [Suspect]
     Indication: POSTOPERATIVE ANALGESIA
     Route: 048
     Dates: start: 20130524, end: 20130531
  2. NAPROXEN [Suspect]
     Indication: POST PROCEDURAL COMPLICATION
  3. AMOXICILLIN [Concomitant]
  4. CODEINE [Concomitant]
  5. FLUCLOXACILLIN [Concomitant]
  6. IBUPROFEN [Concomitant]
  7. OMEPRAZOLE [Concomitant]
  8. PARACETAMOL [Concomitant]
  9. TRAMADOL [Concomitant]

REACTIONS (8)
  - Abdominal distension [Recovered/Resolved]
  - Abdominal pain [Recovered/Resolved]
  - Vision blurred [Recovered/Resolved]
  - Mouth ulceration [Recovering/Resolving]
  - Blood pressure increased [Unknown]
  - Tinnitus [Recovered/Resolved]
  - Dyspepsia [Recovering/Resolving]
  - Local swelling [Recovered/Resolved]
